FAERS Safety Report 7526349-1 (Version None)
Quarter: 2011Q2

REPORT INFORMATION
  Report Type: 
  Country: None (occurrence: None)
  Receive Date: 20110606
  Receipt Date: 20091122
  Transmission Date: 20111010
  Serious: Yes (Death, Other)
  Sender: FDA-Public Use
  Company Number: US-BAYER-200940653NA

PATIENT
  Age: 5 Day
  Sex: Female
  Weight: 13.4 kg

DRUGS (60)
  1. TRASYLOL [Suspect]
     Indication: ATRIAL SEPTAL DEFECT REPAIR
     Dosage: 22 ML Q1HR
     Route: 042
     Dates: start: 20040428, end: 20040428
  2. PANCURONIUM [Concomitant]
     Indication: PRODUCT USED FOR UNKNOWN INDICATION
     Dosage: UNK
     Route: 042
     Dates: start: 20040428
  3. PANCURONIUM [Concomitant]
     Dosage: 6 UNK
     Route: 042
     Dates: start: 20070607
  4. PROTAMINE SULFATE [Concomitant]
     Indication: PRODUCT USED FOR UNKNOWN INDICATION
     Dosage: UNK
     Route: 042
     Dates: start: 20040428, end: 20040428
  5. MILRINONE [Concomitant]
     Dosage: 1.75 UNK
     Route: 042
     Dates: start: 20070607
  6. EPINEPHRINE [Concomitant]
     Indication: PRODUCT USED FOR UNKNOWN INDICATION
     Dosage: 0.17 UNK
     Route: 042
     Dates: start: 20040428
  7. HEPARIN [Concomitant]
     Dosage: 4000 U, UNK
     Route: 042
     Dates: start: 20070607
  8. SOLU-MEDROL [Concomitant]
     Indication: PRODUCT USED FOR UNKNOWN INDICATION
     Dosage: 15 MG, UNK
     Route: 042
     Dates: start: 20041202
  9. VASOPRESSOR [Concomitant]
     Indication: PRODUCT USED FOR UNKNOWN INDICATION
     Dosage: 0.2 ?G/H, UNK
     Route: 042
     Dates: start: 20070607
  10. TRASYLOL [Suspect]
     Dosage: 22 ML (LOADING DOSE)
     Route: 042
     Dates: start: 20041202, end: 20041202
  11. TRASYLOL [Suspect]
     Dosage: 10 ML, Q1HR
     Route: 042
     Dates: start: 20041202
  12. ENALAPRIL MALEATE [Concomitant]
     Indication: PRODUCT USED FOR UNKNOWN INDICATION
     Dosage: UNK
     Dates: start: 20040428
  13. MIDAZOLAM [Concomitant]
     Indication: PRODUCT USED FOR UNKNOWN INDICATION
     Dosage: 2.0 MCG
     Route: 042
     Dates: start: 20040428
  14. CALCIUM CHLORIDE [Concomitant]
     Dosage: 20 MG, Q1HR
     Route: 042
     Dates: start: 20070607
  15. PROTAMINE SULFATE [Concomitant]
     Dosage: 27 MG, UNK
     Dates: start: 20041202
  16. BENADRYL [Concomitant]
     Indication: PRODUCT USED FOR UNKNOWN INDICATION
     Dosage: 6.5 ?G, UNK
     Route: 042
     Dates: start: 20041202
  17. PLASMA [Concomitant]
     Dosage: 1/2 UNIT, UNK
     Dates: start: 20041202
  18. PLASMA [Concomitant]
     Dosage: 70 ML, UNK
     Route: 042
     Dates: start: 20041202
  19. MIDAZOLAM [Concomitant]
     Dosage: 2 UNK
     Route: 042
     Dates: start: 20070607
  20. PLASMA [Concomitant]
     Indication: PRODUCT USED FOR UNKNOWN INDICATION
     Dosage: 1/2 UNIT, UNK
     Route: 042
     Dates: start: 20040428
  21. TRASYLOL [Suspect]
     Indication: NORWOOD PROCEDURE
     Dosage: UNK
     Route: 042
     Dates: start: 20020607, end: 20020607
  22. TRASYLOL [Suspect]
     Indication: ANGIOPLASTY
     Dosage: 22 ML, Q1HR
     Route: 042
     Dates: start: 20041202, end: 20041202
  23. LASIX [Concomitant]
     Indication: PRODUCT USED FOR UNKNOWN INDICATION
     Dosage: UNK
     Dates: start: 20040428
  24. CEFUROXIME [Concomitant]
     Indication: PRODUCT USED FOR UNKNOWN INDICATION
     Dosage: 150 MG, UNK
     Route: 042
     Dates: start: 20040428
  25. DOPAMINE HCL [Concomitant]
     Dosage: 13 ?G, UNK
     Route: 042
     Dates: start: 20041202
  26. EPINEPHRINE [Concomitant]
     Dosage: 0.16 ?G/H, UNK
     Route: 042
     Dates: start: 20070607
  27. VERSED [Concomitant]
     Dosage: 7 MG, UNK
     Route: 042
     Dates: start: 20070607
  28. PLASMA [Concomitant]
     Dosage: 1 U, UNK
     Route: 042
     Dates: start: 20041202
  29. TRASYLOL [Suspect]
     Dosage: 46 ML, Q1HR
     Route: 042
     Dates: start: 20070607, end: 20070607
  30. FENTANYL [Concomitant]
     Dosage: 200 ?G, UNK
     Route: 042
     Dates: start: 20041202
  31. FENTANYL [Concomitant]
     Dosage: 50 UNK
     Route: 042
     Dates: start: 20070607
  32. PROTAMINE SULFATE [Concomitant]
     Dosage: UNK
     Route: 042
     Dates: start: 20041202
  33. DOPAMINE HCL [Concomitant]
     Indication: PRODUCT USED FOR UNKNOWN INDICATION
     Dosage: 20 UNK
     Route: 042
     Dates: start: 20040428
  34. VECURONIUM BROMIDE [Concomitant]
     Indication: PRODUCT USED FOR UNKNOWN INDICATION
     Dosage: 1.5 MG, UNK
     Route: 042
     Dates: start: 20041202
  35. FORANE [Concomitant]
     Indication: PRODUCT USED FOR UNKNOWN INDICATION
     Dosage: UNK
     Route: 042
     Dates: start: 20041202
  36. NIMBEX [Concomitant]
     Indication: PRODUCT USED FOR UNKNOWN INDICATION
     Dosage: 5 ?G/H, UNK
     Route: 042
     Dates: start: 20070607
  37. RED BLOOD CELLS [Concomitant]
     Dosage: 110 ML, UNK
     Route: 042
     Dates: start: 20041202
  38. CALCIUM CHLORIDE [Concomitant]
     Indication: PRODUCT USED FOR UNKNOWN INDICATION
     Dosage: 150
     Route: 042
     Dates: start: 20040428
  39. SODIUM THIOPENTAL MITSUBISHI [Concomitant]
     Indication: PRODUCT USED FOR UNKNOWN INDICATION
     Dosage: 35 UNK
     Route: 042
     Dates: start: 20040428
  40. SEVOFLURANE [Concomitant]
     Dosage: UNK
     Dates: start: 20070607
  41. MILRINONE [Concomitant]
     Dosage: 1 ?G, UNK
     Route: 042
     Dates: start: 20041202
  42. VERSED [Concomitant]
     Indication: PRODUCT USED FOR UNKNOWN INDICATION
     Dosage: 0.5 MG, UNK
     Route: 042
     Dates: start: 20041202
  43. PLATELETS [Concomitant]
     Dosage: 2 U, UNK
     Route: 042
     Dates: start: 20070607
  44. TRASYLOL [Suspect]
     Indication: SYSTEMIC-PULMONARY ARTERY SHUNT
     Dosage: 9 ML (LOADING DOSE), UNK
     Route: 042
     Dates: start: 20040428, end: 20040428
  45. FEOSOL [Concomitant]
     Indication: PRODUCT USED FOR UNKNOWN INDICATION
     Dosage: UNK
     Dates: start: 20040428
  46. SEVOFLURANE [Concomitant]
     Indication: PRODUCT USED FOR UNKNOWN INDICATION
     Dosage: UNK
     Dates: start: 20040428
  47. SEVOFLURANE [Concomitant]
     Dosage: UNK
     Dates: start: 20041202
  48. CEFUROXIME [Concomitant]
     Dosage: UNK
     Route: 042
     Dates: start: 20070607
  49. DOPAMINE HCL [Concomitant]
     Dosage: 5 ?G/H, Q1HR
     Route: 042
     Dates: start: 20070607
  50. ZINACEF [Concomitant]
     Indication: PRODUCT USED FOR UNKNOWN INDICATION
     Dosage: 275 MG, UNK
     Route: 042
     Dates: start: 20041202
  51. HEPARIN [Concomitant]
     Dosage: 3100 U, UNK
     Route: 042
     Dates: start: 20041202
  52. RED BLOOD CELLS [Concomitant]
     Dosage: 1 U, UNK
     Route: 042
     Dates: start: 20070607
  53. PLATELETS [Concomitant]
     Indication: PRODUCT USED FOR UNKNOWN INDICATION
     Dosage: 85 ML, UNK
     Route: 042
     Dates: start: 20041202
  54. TRASYLOL [Suspect]
     Dosage: 30 ML (LOADING DOSE), UNK
     Route: 042
     Dates: start: 20070607, end: 20070607
  55. DIGOXIN [Concomitant]
     Indication: PRODUCT USED FOR UNKNOWN INDICATION
     Dosage: UNK
     Dates: start: 20040428
  56. FENTANYL [Concomitant]
     Indication: PRODUCT USED FOR UNKNOWN INDICATION
     Dosage: UNK
     Route: 042
     Dates: start: 20040428
  57. MILRINONE [Concomitant]
     Indication: PRODUCT USED FOR UNKNOWN INDICATION
     Dosage: 1.25 UNK
     Route: 042
     Dates: start: 20040428
  58. HEPARIN [Concomitant]
     Indication: PRODUCT USED FOR UNKNOWN INDICATION
     Dosage: UNK
     Route: 042
     Dates: start: 20041202
  59. RED BLOOD CELLS [Concomitant]
     Indication: PRODUCT USED FOR UNKNOWN INDICATION
     Dosage: 1 U, UNK
     Route: 042
     Dates: start: 20040428
  60. RED BLOOD CELLS [Concomitant]
     Dosage: 1 U, UNK
     Route: 042
     Dates: start: 20041202

REACTIONS (14)
  - PSYCHIATRIC SYMPTOM [None]
  - STRESS [None]
  - UNEVALUABLE EVENT [None]
  - ANXIETY [None]
  - FEAR [None]
  - DEATH [None]
  - RENAL FAILURE [None]
  - MULTI-ORGAN FAILURE [None]
  - EMOTIONAL DISTRESS [None]
  - PAIN [None]
  - ANHEDONIA [None]
  - RENAL IMPAIRMENT [None]
  - RENAL INJURY [None]
  - INJURY [None]
